FAERS Safety Report 5195241-2 (Version None)
Quarter: 2006Q4

REPORT INFORMATION
  Report Type: 
  Country: None (occurrence: None)
  Receive Date: 20061229
  Receipt Date: 20061031
  Transmission Date: 20070319
  Serious: Yes (Other)
  Sender: FDA-Public Use
  Company Number: JP-PFIZER INC-2006135474

PATIENT
  Age: 26 Year
  Sex: Female

DRUGS (2)
  1. ATARAX-P (SUSPENSION) [Suspect]
     Indication: RHINITIS ALLERGIC
     Route: 048
     Dates: start: 20060901, end: 20061001
  2. CELTECT [Concomitant]
     Route: 048

REACTIONS (2)
  - HEPATIC FUNCTION ABNORMAL [None]
  - MALAISE [None]
